FAERS Safety Report 10378623 (Version 1)
Quarter: 2014Q3

REPORT INFORMATION
  Report Type: Spontaneous
  Country: US (occurrence: None)
  Receive Date: 20140811
  Receipt Date: 20140811
  Transmission Date: 20150326
  Serious: No
  Sender: FDA-Public Use
  Company Number: None

PATIENT
  Age: 54 Year
  Sex: Female
  Weight: 85.73 kg

DRUGS (2)
  1. BUPROPION HYDROCHLORIDE SR [Suspect]
     Active Substance: BUPROPION HYDROCHLORIDE
     Indication: WEIGHT DECREASED
     Dosage: 1/2 PILL DAILY ONCE DAILY TAKEN BY MOUTH
     Route: 048
     Dates: start: 20140724, end: 20140808
  2. NALTREXONE HYDROCHLORIDE 50MG MALLINCKRODT INC. PHARMACEUTICAL G [Suspect]
     Active Substance: NALTREXONE HYDROCHLORIDE
     Indication: WEIGHT DECREASED
     Dosage: 1/2 TABLET ONCE DAILY TAKEN BY MOUTH
     Route: 048
     Dates: start: 20140724, end: 20140808

REACTIONS (7)
  - Nausea [None]
  - Dysuria [None]
  - Headache [None]
  - Vomiting [None]
  - Chromaturia [None]
  - Urinary tract infection [None]
  - Constipation [None]

NARRATIVE: CASE EVENT DATE: 20140724
